FAERS Safety Report 20154988 (Version 1)
Quarter: 2021Q4

REPORT INFORMATION
  Report Type: Spontaneous
  Country: US (occurrence: US)
  Receive Date: 20211207
  Receipt Date: 20211207
  Transmission Date: 20220303
  Serious: Yes (Death, Hospitalization, Other)
  Sender: FDA-Public Use
  Company Number: US-ASTELLAS-2021US046429

PATIENT
  Sex: Male

DRUGS (3)
  1. TACROLIMUS [Suspect]
     Active Substance: TACROLIMUS
     Indication: Heart transplant
     Dosage: UNK UNK, UNKNOWN FREQ.
     Route: 065
  2. PREDNISONE [Suspect]
     Active Substance: PREDNISONE
     Indication: Heart transplant
     Dosage: UNK UNK, UNKNOWN FREQ. (LOW DOSE)
     Route: 065
  3. MYCOPHENOLIC ACID [Suspect]
     Active Substance: MYCOPHENOLIC ACID
     Indication: Heart transplant
     Dosage: UNK UNK, UNKNOWN FREQ.
     Route: 065

REACTIONS (10)
  - Gastrointestinal mucormycosis [Fatal]
  - Disseminated mucormycosis [Fatal]
  - Neutropenia [Unknown]
  - Postoperative thoracic procedure complication [Unknown]
  - Pseudomonas infection [Unknown]
  - Bacterial infection [Unknown]
  - Mediastinitis [Unknown]
  - Candida infection [Unknown]
  - Pneumonia [Unknown]
  - Pneumonia pseudomonal [Unknown]
